FAERS Safety Report 22060141 (Version 1)
Quarter: 2023Q1

REPORT INFORMATION
  Report Type: Spontaneous
  Country: US (occurrence: None)
  Receive Date: 20230302
  Receipt Date: 20230302
  Transmission Date: 20230417
  Serious: Yes (Other)
  Sender: FDA-Public Use
  Company Number: None

PATIENT
  Age: 9 Year
  Sex: Male
  Weight: 36 kg

DRUGS (2)
  1. CEFDINIR [Suspect]
     Active Substance: CEFDINIR
     Indication: Ear infection
     Dosage: OTHER QUANTITY : 2.5 TEASPOON(S);?FREQUENCY : TWICE A DAY;?
     Route: 048
     Dates: start: 20230226, end: 20230302
  2. vitamins ( flintstone with iron tablet ) daily [Concomitant]

REACTIONS (2)
  - Tongue disorder [None]
  - Discomfort [None]

NARRATIVE: CASE EVENT DATE: 20230301
